FAERS Safety Report 7463468-2 (Version None)
Quarter: 2011Q2

REPORT INFORMATION
  Report Type: 
  Country: None (occurrence: None)
  Receive Date: 20110506
  Receipt Date: 20110506
  Transmission Date: 20111010
  Serious: Yes (Other)
  Sender: FDA-Public Use
  Company Number: US-PFIZER INC-2011094163

PATIENT
  Age: 84 Year
  Sex: Female

DRUGS (5)
  1. CLONIDINE [Suspect]
     Indication: MUSCLE TWITCHING
  2. CLONAZEPAM [Suspect]
     Indication: MUSCLE TWITCHING
  3. PHENYTOIN [Suspect]
     Indication: MUSCLE TWITCHING
  4. LEVETIRACETAM [Suspect]
     Indication: MUSCLE TWITCHING
  5. PROPRANOLOL [Suspect]
     Indication: MUSCLE TWITCHING

REACTIONS (3)
  - VIITH NERVE PARALYSIS [None]
  - DELIRIUM [None]
  - MUSCLE TWITCHING [None]
